FAERS Safety Report 6868603-2 (Version None)
Quarter: 2010Q3

REPORT INFORMATION
  Report Type: 
  Country: None (occurrence: None)
  Receive Date: 20100722
  Receipt Date: 20080709
  Transmission Date: 20110219
  Serious: No
  Sender: FDA-Public Use
  Company Number: US-PFIZER INC-2008046414

PATIENT
  Sex: Female
  Weight: 92.08 kg

DRUGS (10)
  1. CHANTIX [Suspect]
     Indication: SMOKING CESSATION THERAPY
     Route: 048
     Dates: start: 20080428, end: 20080602
  2. PREMARIN [Concomitant]
  3. NEXIUM [Concomitant]
  4. CELEXA [Concomitant]
  5. ACETYLSALICYLIC ACID [Concomitant]
  6. VITAMIN B [Concomitant]
  7. VITAMIN C [Concomitant]
  8. NASONEX [Concomitant]
  9. ANTIBIOTICS [Concomitant]
  10. IBANDRONATE SODIUM [Concomitant]

REACTIONS (2)
  - DRUG HYPERSENSITIVITY [None]
  - RASH MACULO-PAPULAR [None]
